FAERS Safety Report 8371189-7 (Version None)
Quarter: 2012Q2

REPORT INFORMATION
  Report Type: 
  Country: None (occurrence: None)
  Receive Date: 20120518
  Receipt Date: 20120515
  Transmission Date: 20120825
  Serious: Yes (Hospitalization)
  Sender: FDA-Public Use
  Company Number: PHHY2012DK041294

PATIENT
  Sex: Female
  Weight: 54 kg

DRUGS (3)
  1. DIGOXIN [Concomitant]
     Indication: CARDIAC DISORDER
  2. ASPIRIN [Concomitant]
     Indication: THROMBOSIS PROPHYLAXIS
  3. CITALOPRAM HYDROBROMIDE [Suspect]
     Indication: DEPRESSION
     Dosage: 10 MG, QD
     Route: 002
     Dates: start: 20120221, end: 20120419

REACTIONS (4)
  - ALANINE AMINOTRANSFERASE INCREASED [None]
  - CEREBRAL DISORDER [None]
  - BLOOD ALKALINE PHOSPHATASE INCREASED [None]
  - HEPATIC FUNCTION ABNORMAL [None]
